FAERS Safety Report 7981878-1 (Version None)
Quarter: 2011Q4

REPORT INFORMATION
  Report Type: 
  Country: None (occurrence: None)
  Receive Date: 20111215
  Receipt Date: 20111205
  Transmission Date: 20120403
  Serious: Yes (Other)
  Sender: FDA-Public Use
  Company Number: US-JNJFOC-20111105599

PATIENT
  Age: 53 Year
  Sex: Female

DRUGS (4)
  1. HYDROCHLOROTHIAZIDE [Concomitant]
     Indication: FLUID RETENTION
     Route: 065
  2. HYDROCHLOROTHIAZIDE [Concomitant]
     Indication: HYPERTENSION
     Route: 065
  3. TYLENOL COLD AND FLU PRODUCT [Suspect]
     Indication: OROPHARYNGEAL PAIN
     Route: 048
     Dates: start: 20111031, end: 20111031
  4. ZANTAC [Concomitant]
     Indication: ABDOMINAL PAIN UPPER
     Dosage: OCCASIONAL USE

REACTIONS (3)
  - ABDOMINAL PAIN UPPER [None]
  - OESOPHAGITIS [None]
  - NAUSEA [None]
